FAERS Safety Report 19657075 (Version 3)
Quarter: 2021Q4

REPORT INFORMATION
  Report Type: Spontaneous
  Country: US (occurrence: US)
  Receive Date: 20210804
  Receipt Date: 20211123
  Transmission Date: 20220303
  Serious: Yes (Hospitalization, Other)
  Sender: FDA-Public Use
  Company Number: US-GILEAD-2021-0542483

PATIENT
  Age: 46 Year
  Sex: Male
  Weight: 115.65 kg

DRUGS (37)
  1. ATRIPLA [Suspect]
     Active Substance: EFAVIRENZ\EMTRICITABINE\TENOFOVIR DISOPROXIL FUMARATE
     Indication: HIV infection
     Dosage: UNK
     Route: 048
     Dates: start: 2006, end: 20171013
  2. GENVOYA [Concomitant]
     Active Substance: COBICISTAT\ELVITEGRAVIR\EMTRICITABINE\TENOFOVIR ALAFENAMIDE FUMARATE
  3. BIKTARVY [Concomitant]
     Active Substance: BICTEGRAVIR SODIUM\EMTRICITABINE\TENOFOVIR ALAFENAMIDE FUMARATE
  4. BACLOFEN [Concomitant]
     Active Substance: BACLOFEN
  5. LYRICA [Concomitant]
     Active Substance: PREGABALIN
  6. CHOLECALCIFEROL [Concomitant]
     Active Substance: CHOLECALCIFEROL
  7. LOSARTAN POTASSIUM [Concomitant]
     Active Substance: LOSARTAN POTASSIUM
  8. METOPROLOL [Concomitant]
     Active Substance: METOPROLOL
  9. AMLODIPINE [Concomitant]
     Active Substance: AMLODIPINE BESYLATE
  10. AMOXICILLIN [Concomitant]
     Active Substance: AMOXICILLIN
  11. ASPIRIN [Concomitant]
     Active Substance: ASPIRIN
  12. ATENOLOL [Concomitant]
     Active Substance: ATENOLOL
  13. BISACODYL [Concomitant]
     Active Substance: BISACODYL
  14. CITALOPRAM [Concomitant]
     Active Substance: CITALOPRAM HYDROBROMIDE
  15. CLINDAMYCIN [Concomitant]
     Active Substance: CLINDAMYCIN
  16. CLONAZEPAM [Concomitant]
     Active Substance: CLONAZEPAM
  17. DOCUSATE SODIUM [Concomitant]
     Active Substance: DOCUSATE SODIUM
  18. DOXYCYCLINE [Concomitant]
     Active Substance: DOXYCYCLINE
  19. FLUOXETINE [Concomitant]
     Active Substance: FLUOXETINE HYDROCHLORIDE
  20. GABAPENTIN [Concomitant]
     Active Substance: GABAPENTIN
  21. HYDROCODONE [Concomitant]
     Active Substance: HYDROCODONE
  22. IBUPROFEN [Concomitant]
     Active Substance: IBUPROFEN
  23. INDOMETHACIN [Concomitant]
     Active Substance: INDOMETHACIN
  24. LISINOPRIL [Concomitant]
     Active Substance: LISINOPRIL
  25. METRONIDAZOLE [Concomitant]
     Active Substance: METRONIDAZOLE
  26. MORPHINE [Concomitant]
     Active Substance: MORPHINE
  27. MUPIROCIN [Concomitant]
     Active Substance: MUPIROCIN
  28. NAPROXEN [Concomitant]
     Active Substance: NAPROXEN
  29. NIFEDIPINE [Concomitant]
     Active Substance: NIFEDIPINE
  30. OXYCODONE [Concomitant]
     Active Substance: OXYCODONE
  31. RANITIDINE [Concomitant]
     Active Substance: RANITIDINE
  32. SULFAMETHOXAZOLE [Concomitant]
     Active Substance: SULFAMETHOXAZOLE
  33. TRAZODONE [Concomitant]
     Active Substance: TRAZODONE HYDROCHLORIDE
  34. TERBINAFINE [Concomitant]
     Active Substance: TERBINAFINE
  35. TRIAMCINOLONE [Concomitant]
     Active Substance: TRIAMCINOLONE
  36. VITAMIN D2 [Concomitant]
     Active Substance: ERGOCALCIFEROL
  37. ZOLPIDEM [Concomitant]
     Active Substance: ZOLPIDEM TARTRATE

REACTIONS (8)
  - Coma [Recovered/Resolved]
  - Acute kidney injury [Recovered/Resolved]
  - Renal failure [Unknown]
  - Emotional distress [Not Recovered/Not Resolved]
  - Anhedonia [Not Recovered/Not Resolved]
  - Pain [Not Recovered/Not Resolved]
  - Anxiety [Not Recovered/Not Resolved]
  - Depression [Not Recovered/Not Resolved]

NARRATIVE: CASE EVENT DATE: 20130201
